FAERS Safety Report 5811384-1 (Version None)
Quarter: 2008Q3

REPORT INFORMATION
  Report Type: 
  Country: None (occurrence: None)
  Receive Date: 20080716
  Receipt Date: 20080704
  Transmission Date: 20090109
  Serious: Yes (Hospitalization)
  Sender: FDA-Public Use
  Company Number: JP-AVENTIS-200812015JP

PATIENT
  Age: 64 Year
  Sex: Female

DRUGS (3)
  1. TAXOTERE [Suspect]
     Indication: OESOPHAGEAL CARCINOMA
     Route: 041
     Dates: start: 20080101
  2. CISPLATIN [Concomitant]
     Indication: OESOPHAGEAL CARCINOMA
     Dates: start: 20080101
  3. FLUOROURACIL [Concomitant]
     Indication: OESOPHAGEAL CARCINOMA
     Dates: start: 20080101

REACTIONS (2)
  - ALTERED STATE OF CONSCIOUSNESS [None]
  - INAPPROPRIATE ANTIDIURETIC HORMONE SECRETION [None]
